FAERS Safety Report 9822553 (Version 2)
Quarter: 2014Q1

REPORT INFORMATION
  Report Type: Spontaneous
  Country: FR (occurrence: FR)
  Receive Date: 20140116
  Receipt Date: 20140130
  Transmission Date: 20141002
  Serious: Yes (Hospitalization)
  Sender: FDA-Public Use
  Company Number: FR-009507513-1401FRA003295

PATIENT
  Age: 24 Year
  Sex: Female

DRUGS (8)
  1. GONADOTROPHINE CHORIONIQUE ENDO 5000 UI/1ML [Suspect]
     Indication: IN VITRO FERTILISATION
     Dosage: 1 DF, ONCE
     Route: 030
     Dates: start: 20130403, end: 20130403
  2. DECAPEPTYL (TRIPTORELIN PAMOATE) [Suspect]
     Indication: IN VITRO FERTILISATION
     Dosage: 1 DF, ONCE
     Route: 030
     Dates: start: 201303, end: 201303
  3. GONAL-F [Suspect]
     Indication: IN VITRO FERTILISATION
     Dosage: 125 IU, QD
     Route: 058
     Dates: start: 20130321, end: 20130326
  4. GONAL-F [Suspect]
     Dosage: 75 IU, QD
     Route: 058
     Dates: start: 20130327, end: 20130330
  5. GONAL-F [Suspect]
     Dosage: 200 IU, QD
     Route: 058
     Dates: start: 20130331, end: 20130331
  6. GONAL-F [Suspect]
     Dosage: 350 IU, QD
     Route: 058
     Dates: start: 20130401, end: 20130401
  7. GONAL-F [Suspect]
     Dosage: 300 IU, QD
     Route: 058
     Dates: start: 20130402, end: 20130402
  8. UTROGESTAN [Suspect]
     Indication: IN VITRO FERTILISATION
     Dosage: 3 DF, QD
     Route: 067
     Dates: start: 20130405, end: 2013

REACTIONS (3)
  - Hyponatraemia [Recovered/Resolved]
  - Ascites [Recovered/Resolved]
  - Ovarian hyperstimulation syndrome [Recovered/Resolved]
